FAERS Safety Report 13245603 (Version 3)
Quarter: 2017Q2

REPORT INFORMATION
  Report Type: Report from Study
  Country: None (occurrence: US)
  Receive Date: 20170217
  Receipt Date: 20170412
  Transmission Date: 20170830
  Serious: Yes (Hospitalization, Other)
  Sender: FDA-Public Use
  Company Number: US-ABBVIE-17K-163-1874539-00

PATIENT
  Age: 21 Year
  Sex: Male
  Weight: 77.18 kg

DRUGS (5)
  1. IRON [Concomitant]
     Active Substance: IRON
     Indication: PRODUCT USED FOR UNKNOWN INDICATION
  2. PREDNISONE. [Concomitant]
     Active Substance: PREDNISONE
     Indication: PRODUCT USED FOR UNKNOWN INDICATION
  3. HUMIRA [Suspect]
     Active Substance: ADALIMUMAB
     Route: 058
     Dates: start: 201701, end: 201701
  4. IMURAN [Concomitant]
     Active Substance: AZATHIOPRINE
     Indication: PRODUCT USED FOR UNKNOWN INDICATION
  5. HUMIRA [Suspect]
     Active Substance: ADALIMUMAB
     Indication: COLITIS ULCERATIVE
     Route: 058
     Dates: end: 201612

REACTIONS (10)
  - Seizure [Recovered/Resolved]
  - Nerve compression [Unknown]
  - Amnesia [Recovered/Resolved]
  - Pharyngitis streptococcal [Recovered/Resolved]
  - Hypoaesthesia [Recovered/Resolved]
  - Colitis ulcerative [Recovering/Resolving]
  - Cerebral thrombosis [Recovered/Resolved]
  - Loss of consciousness [Recovered/Resolved]
  - Clostridium difficile infection [Recovered/Resolved]
  - Tonsillar disorder [Recovered/Resolved]

NARRATIVE: CASE EVENT DATE: 201612
